FAERS Safety Report 21690742 (Version 1)
Quarter: 2022Q4

REPORT INFORMATION
  Report Type: Report from Study
  Country: US (occurrence: US)
  Receive Date: 20221206
  Receipt Date: 20221206
  Transmission Date: 20230112
  Serious: Yes (Hospitalization)
  Sender: FDA-Public Use
  Company Number: US-ABBVIE-4225043

PATIENT
  Sex: Female

DRUGS (1)
  1. HUMIRA [Suspect]
     Active Substance: ADALIMUMAB
     Indication: Crohn^s disease
     Dosage: FORM STRENGTH: 40 MILLIGRAM/CITRATE FREE/EVENT ONSET FOR ARTHROPOD BITE AND INFECTED KNEE SHOULD ...
     Route: 058
     Dates: start: 20221005, end: 20221115

REACTIONS (2)
  - Infected bite [Recovering/Resolving]
  - Arthropod bite [Unknown]
